FAERS Safety Report 15645368 (Version 7)
Quarter: 2025Q2

REPORT INFORMATION
  Report Type: Report from Study
  Country: US (occurrence: US)
  Receive Date: 20181121
  Receipt Date: 20250403
  Transmission Date: 20250716
  Serious: Yes (Other)
  Sender: TAKEDA
  Company Number: US-SHIRE-US201844726

PATIENT
  Age: 44 Year
  Sex: Female

DRUGS (6)
  1. TEDUGLUTIDE [Suspect]
     Active Substance: TEDUGLUTIDE
     Indication: Short-bowel syndrome
  2. TEDUGLUTIDE [Suspect]
     Active Substance: TEDUGLUTIDE
  3. TEDUGLUTIDE [Suspect]
     Active Substance: TEDUGLUTIDE
     Dosage: UNK UNK, QD
  4. TEDUGLUTIDE [Suspect]
     Active Substance: TEDUGLUTIDE
  5. TEDUGLUTIDE [Suspect]
     Active Substance: TEDUGLUTIDE
  6. TEDUGLUTIDE [Suspect]
     Active Substance: TEDUGLUTIDE

REACTIONS (11)
  - Crohn^s disease [Not Recovered/Not Resolved]
  - Stoma site oedema [Unknown]
  - Chills [Unknown]
  - Pyrexia [Unknown]
  - Weight decreased [Unknown]
  - Diarrhoea [Unknown]
  - Abdominal pain upper [Unknown]
  - Hernia [Unknown]
  - Abdominal wall mass [Unknown]
  - Weight increased [Unknown]
  - Vomiting [Unknown]

NARRATIVE: CASE EVENT DATE: 20210311
